FAERS Safety Report 5618171-8 (Version None)
Quarter: 2008Q1

REPORT INFORMATION
  Report Type: 
  Country: None (occurrence: None)
  Receive Date: 20080207
  Receipt Date: 20071102
  Transmission Date: 20080703
  Serious: No
  Sender: FDA-Public Use
  Company Number: A0693629A

PATIENT
  Age: 50 Year
  Sex: Female

DRUGS (1)
  1. PAROXETINE [Suspect]
     Dosage: 30MG PER DAY
     Route: 048
     Dates: start: 20071021

REACTIONS (3)
  - DIARRHOEA [None]
  - DYSPEPSIA [None]
  - PHARMACEUTICAL PRODUCT COMPLAINT [None]
